FAERS Safety Report 16199393 (Version 1)
Quarter: 2019Q2

REPORT INFORMATION
  Report Type: Spontaneous
  Country: US (occurrence: US)
  Receive Date: 20190415
  Receipt Date: 20190415
  Transmission Date: 20190711
  Serious: No
  Sender: FDA-Public Use
  Company Number: US-PFIZER INC-2019157901

PATIENT
  Age: 56 Year
  Sex: Male
  Weight: 95.25 kg

DRUGS (10)
  1. LORAZEPAM. [Suspect]
     Active Substance: LORAZEPAM
     Indication: PANIC DISORDER
  2. DIAZEPAM. [Suspect]
     Active Substance: DIAZEPAM
     Indication: PANIC DISORDER
  3. VALIUM [Suspect]
     Active Substance: DIAZEPAM
     Indication: PANIC DISORDER
  4. CLONAZEPAM. [Suspect]
     Active Substance: CLONAZEPAM
     Indication: PANIC ATTACK
     Dosage: 2 MG, UNK
  5. LORAZEPAM. [Suspect]
     Active Substance: LORAZEPAM
     Indication: PANIC ATTACK
     Dosage: 2 MG, UNK
     Dates: start: 2018
  6. VALIUM [Suspect]
     Active Substance: DIAZEPAM
     Indication: PANIC ATTACK
     Dosage: 2 MG, UNK
  7. DIAZEPAM. [Suspect]
     Active Substance: DIAZEPAM
     Indication: PANIC ATTACK
     Dosage: 2 MG, UNK
     Dates: start: 2018
  8. LOPRAZOLAM [Suspect]
     Active Substance: LOPRAZOLAM
     Indication: PANIC DISORDER
  9. LOPRAZOLAM [Suspect]
     Active Substance: LOPRAZOLAM
     Indication: PANIC ATTACK
     Dosage: 2 MG, UNK
     Dates: start: 2018
  10. CLONAZEPAM. [Suspect]
     Active Substance: CLONAZEPAM
     Indication: PANIC DISORDER

REACTIONS (3)
  - Drug ineffective [Not Recovered/Not Resolved]
  - Dizziness [Not Recovered/Not Resolved]
  - Feeling abnormal [Not Recovered/Not Resolved]

NARRATIVE: CASE EVENT DATE: 2018
